FAERS Safety Report 4424978-5 (Version None)
Quarter: 2004Q3

REPORT INFORMATION
  Report Type: 
  Country: None (occurrence: None)
  Receive Date: 20040809
  Receipt Date: 20040727
  Transmission Date: 20050211
  Serious: Yes (Other)
  Sender: FDA-Public Use
  Company Number: US-JNJFOC-20040707836

PATIENT
  Age: 54 Year
  Sex: Female

DRUGS (6)
  1. TOPAMAX [Suspect]
     Indication: MIGRAINE
     Dosage: 200 MG, 2 IN 1 DAY, ORAL
     Route: 048
     Dates: start: 20020101
  2. DESIPRAMINE HCL [Concomitant]
  3. ZANAFLEX [Concomitant]
  4. COLCHICINE [Concomitant]
  5. MULTI-VITAMIN [Concomitant]
  6. IBUPROFEN [Concomitant]

REACTIONS (6)
  - ANTINUCLEAR ANTIBODY POSITIVE [None]
  - DYSGEUSIA [None]
  - HAIR COLOUR CHANGES [None]
  - SYSTEMIC LUPUS ERYTHEMATOSUS [None]
  - TANNING [None]
  - TONGUE ULCERATION [None]
